FAERS Safety Report 12093387 (Version 1)
Quarter: 2016Q1

REPORT INFORMATION
  Report Type: Other
  Country: ES (occurrence: ES)
  Receive Date: 20160219
  Receipt Date: 20160219
  Transmission Date: 20160526
  Serious: Yes (Other)
  Sender: FDA-Public Use
  Company Number: ES-SHIRE-ES201601664

PATIENT
  Age: 58 Year
  Sex: Male
  Weight: 64 kg

DRUGS (1)
  1. VPRIV [Suspect]
     Active Substance: VELAGLUCERASE ALFA
     Indication: GAUCHER^S DISEASE
     Dosage: 4000 IU (10 VIALS), UNKNOWN
     Route: 041

REACTIONS (3)
  - Cardiac failure congestive [Unknown]
  - Respiratory tract infection [Unknown]
  - Orthopnoea [Not Recovered/Not Resolved]

NARRATIVE: CASE EVENT DATE: 20160208
